FAERS Safety Report 14503595 (Version 1)
Quarter: 2018Q1

REPORT INFORMATION
  Report Type: Spontaneous
  Country: US (occurrence: US)
  Receive Date: 20180208
  Receipt Date: 20180208
  Transmission Date: 20180509
  Serious: No
  Sender: FDA-Public Use
  Company Number: US-JNJFOC-20171234746

PATIENT
  Age: 57 Year
  Sex: Male
  Weight: 204 kg

DRUGS (4)
  1. SIMVASTATIN. [Concomitant]
     Active Substance: SIMVASTATIN
  2. LISINOPRIL. [Concomitant]
     Active Substance: LISINOPRIL
  3. IMBRUVICA [Suspect]
     Active Substance: IBRUTINIB
     Indication: LYMPHOCYTOSIS
     Route: 048
     Dates: start: 20141029, end: 20171218
  4. WARFARIN [Concomitant]
     Active Substance: WARFARIN

REACTIONS (2)
  - Off label use [Unknown]
  - Product use in unapproved indication [Unknown]

NARRATIVE: CASE EVENT DATE: 20141029
